FAERS Safety Report 9754359 (Version 1)
Quarter: 2013Q4

REPORT INFORMATION
  Report Type: Spontaneous
  Country: IT (occurrence: ES)
  Receive Date: 20131213
  Receipt Date: 20131213
  Transmission Date: 20140711
  Serious: Yes (Hospitalization)
  Sender: FDA-Public Use
  Company Number: ES-FRI-1000052173

PATIENT
  Age: 79 Year
  Sex: Female

DRUGS (10)
  1. NEBIVOLOL [Suspect]
     Dosage: 5 MG
     Route: 048
     Dates: start: 201203, end: 20130509
  2. PROCORALAN [Suspect]
     Dosage: 15 MG
     Route: 048
     Dates: start: 201304, end: 20130509
  3. OMEPRAZOLE [Concomitant]
     Dosage: 20 MG
     Route: 048
  4. ACETYLSALICYLIC ACID [Concomitant]
     Dosage: 100 MG
     Route: 048
  5. FUROSEMIDE [Concomitant]
     Route: 048
  6. ALPIZA [Concomitant]
     Dosage: 2 MG
     Route: 048
  7. EPREX [Concomitant]
     Dosage: 3000 IU WEEKLY
     Route: 058
  8. HYPERTENE [Concomitant]
     Dosage: 10 MG
     Route: 048
  9. ROCALTROL [Concomitant]
     Dosage: 0.125 MCG
     Route: 048
  10. TARDYFERON [Concomitant]
     Route: 048

REACTIONS (2)
  - Sinus bradycardia [Recovered/Resolved]
  - Drug interaction [Recovered/Resolved]
